FAERS Safety Report 11132940 (Version 3)
Quarter: 2015Q2

REPORT INFORMATION
  Report Type: Spontaneous
  Country: US (occurrence: US)
  Receive Date: 20150522
  Receipt Date: 20150616
  Transmission Date: 20150821
  Serious: No
  Sender: FDA-Public Use
  Company Number: US-SHIRE-US201504437

PATIENT
  Age: 53 Year
  Sex: Male
  Weight: 78.91 kg

DRUGS (1)
  1. LIALDA [Suspect]
     Active Substance: MESALAMINE
     Indication: COLITIS
     Dosage: 3.6 G, 1X/DAY:QD
     Route: 048
     Dates: start: 2013

REACTIONS (4)
  - Frequent bowel movements [Recovered/Resolved]
  - Drug effect decreased [Not Recovered/Not Resolved]
  - Abdominal discomfort [Recovered/Resolved]
  - Colitis [Recovering/Resolving]

NARRATIVE: CASE EVENT DATE: 201504
